FAERS Safety Report 6236532-3 (Version None)
Quarter: 2009Q2

REPORT INFORMATION
  Report Type: 
  Country: None (occurrence: None)
  Receive Date: 20090619
  Receipt Date: 20090610
  Transmission Date: 20091009
  Serious: Yes (Death, Hospitalization)
  Sender: FDA-Public Use
  Company Number: B0576951A

PATIENT
  Sex: Male

DRUGS (8)
  1. ARIXTRA [Suspect]
     Indication: DRUG USE FOR UNKNOWN INDICATION
     Route: 058
     Dates: start: 20081201, end: 20081223
  2. PREVISCAN [Suspect]
     Indication: DRUG USE FOR UNKNOWN INDICATION
     Dosage: .5UNIT PER DAY
     Route: 048
     Dates: start: 20081223, end: 20081229
  3. NEORAL [Concomitant]
     Dosage: 50MG TWICE PER DAY
     Route: 048
  4. ALDACTONE [Concomitant]
     Dosage: 12.5MG PER DAY
     Route: 048
  5. LASIX [Concomitant]
     Indication: DRUG USE FOR UNKNOWN INDICATION
     Dosage: 80MG PER DAY
     Route: 048
  6. ZYLORIC [Concomitant]
     Indication: GOUT
     Dosage: 200MG PER DAY
     Route: 048
  7. LERCAN [Concomitant]
     Indication: DRUG USE FOR UNKNOWN INDICATION
     Dosage: 5MG PER DAY
     Route: 048
  8. VASTEN [Concomitant]
     Dosage: 20MG PER DAY
     Route: 048

REACTIONS (9)
  - ALTERED STATE OF CONSCIOUSNESS [None]
  - CEREBRAL HAEMORRHAGE [None]
  - CEREBROVASCULAR ACCIDENT [None]
  - FALL [None]
  - HAEMOGLOBIN DECREASED [None]
  - INTRA-ABDOMINAL HAEMATOMA [None]
  - OFF LABEL USE [None]
  - SHOCK HAEMORRHAGIC [None]
  - VOMITING [None]
